FAERS Safety Report 10620364 (Version 1)
Quarter: 2014Q4

REPORT INFORMATION
  Report Type: Spontaneous
  Country: AU (occurrence: None)
  Receive Date: 20141201
  Receipt Date: 20141201
  Transmission Date: 20150529
  Serious: Yes (Hospitalization)
  Sender: FDA-Public Use
  Company Number: None

PATIENT
  Age: 36 Year
  Sex: Female
  Weight: 75 kg

DRUGS (1)
  1. NEXIUM [Suspect]
     Active Substance: ESOMEPRAZOLE MAGNESIUM
     Indication: DUODENAL PERFORATION
     Dosage: 1 PILL ONCE DAILY
     Dates: start: 20140918, end: 20141129

REACTIONS (3)
  - Alopecia [None]
  - Abdominal pain upper [None]
  - Cardiac disorder [None]

NARRATIVE: CASE EVENT DATE: 20141129
